FAERS Safety Report 24086841 (Version 1)
Quarter: 2024Q3

REPORT INFORMATION
  Report Type: Spontaneous
  Country: KR (occurrence: KR)
  Receive Date: 20240713
  Receipt Date: 20240713
  Transmission Date: 20241016
  Serious: No
  Sender: Waylis
  Company Number: KR-WT-2024-APC-065151

PATIENT
  Sex: Male

DRUGS (1)
  1. AVODART [Suspect]
     Active Substance: DUTASTERIDE
     Indication: Alopecia
     Dosage: 0.5 MG
     Route: 065

REACTIONS (4)
  - Depression [Unknown]
  - Libido decreased [Unknown]
  - Testicular swelling [Unknown]
  - Inappropriate schedule of product administration [Unknown]
